FAERS Safety Report 5214180-1 (Version None)
Quarter: 2007Q1

REPORT INFORMATION
  Report Type: 
  Country: None (occurrence: None)
  Receive Date: 20070122
  Receipt Date: 20070116
  Transmission Date: 20070707
  Serious: Yes (Other)
  Sender: FDA-Public Use
  Company Number: US-AVENTIS-200618876US

PATIENT
  Age: 16 Year
  Sex: Male

DRUGS (3)
  1. LANTUS [Suspect]
     Route: 058
  2. OPTICLIK (INSULIN INJECTION PEN) [Suspect]
     Dosage: DOSE: UNKNOWN
  3. HUMALOG [Suspect]
     Dosage: DOSE: UNKNOWN

REACTIONS (5)
  - BLOOD GLUCOSE INCREASED [None]
  - DIZZINESS [None]
  - HYPOGLYCAEMIA [None]
  - PNEUMONIA PRIMARY ATYPICAL [None]
  - TREMOR [None]
